FAERS Safety Report 4803426-7 (Version None)
Quarter: 2005Q4

REPORT INFORMATION
  Report Type: 
  Country: None (occurrence: None)
  Receive Date: 20051019
  Receipt Date: 20051006
  Transmission Date: 20060501
  Serious: Yes (Life-Threatening)
  Sender: FDA-Public Use
  Company Number: 2005CG01681

PATIENT
  Age: 803 Month
  Sex: Female
  Weight: 92 kg

DRUGS (7)
  1. ARIMIDEX [Suspect]
     Indication: BREAST CANCER
     Route: 048
     Dates: start: 20020101
  2. FLUOROURACIL [Concomitant]
     Indication: BREAST CANCER
     Dosage: SIX CYCLES RECEIVED
     Dates: start: 20020101
  3. EPIRUBICIN [Concomitant]
     Indication: BREAST CANCER
     Dosage: SIX CYCLES RECEIVED
     Dates: start: 20020101
  4. CYCLOPHOSPHAMIDE [Concomitant]
     Indication: BREAST CANCER
     Dosage: SIX CYCLES RECEIVED
     Dates: start: 20020101
  5. ADRIAMYCIN PFS [Concomitant]
     Indication: BREAST CANCER
  6. RADIOTHERAPY [Concomitant]
     Indication: BREAST CANCER
  7. TAHOR [Concomitant]
     Indication: HYPERCHOLESTEROLAEMIA

REACTIONS (1)
  - CARDIAC FAILURE [None]
